FAERS Safety Report 6825902-8 (Version None)
Quarter: 2010Q3

REPORT INFORMATION
  Report Type: 
  Country: None (occurrence: None)
  Receive Date: 20100709
  Receipt Date: 20080207
  Transmission Date: 20110219
  Serious: Yes (Hospitalization, Other)
  Sender: FDA-Public Use
  Company Number: GB-JNJFOC-20100701193

PATIENT
  Age: 56 Year
  Sex: Male
  Weight: 74 kg

DRUGS (1)
  1. ACETAMINOPHEN AND CODEINE PHOSPHATE [Suspect]
     Indication: BACK PAIN
     Dosage: AS NECESSARY
     Route: 048

REACTIONS (1)
  - INTUSSUSCEPTION [None]
